FAERS Safety Report 5343965-6 (Version None)
Quarter: 2007Q2

REPORT INFORMATION
  Report Type: 
  Country: None (occurrence: None)
  Receive Date: 20070531
  Receipt Date: 20070531
  Transmission Date: 20071010
  Serious: Yes (Life-Threatening, Hospitalization)
  Sender: FDA-Public Use
  Company Number: None

PATIENT
  Age: 42 Year
  Sex: Male

DRUGS (2)
  1. MORPHINE [Suspect]
     Indication: NEURALGIA
     Dosage: IT
     Route: 037
  2. BACLOFEN [Suspect]
     Indication: NEURALGIA
     Dosage: IT
     Route: 037

REACTIONS (5)
  - DYSPNOEA [None]
  - HYPOVENTILATION [None]
  - LOSS OF CONSCIOUSNESS [None]
  - OXYGEN SATURATION DECREASED [None]
  - SOMNOLENCE [None]
